FAERS Safety Report 6576900-3 (Version None)
Quarter: 2010Q1

REPORT INFORMATION
  Report Type: 
  Country: None (occurrence: None)
  Receive Date: 20100210
  Receipt Date: 20100203
  Transmission Date: 20100710
  Serious: Yes (Other)
  Sender: FDA-Public Use
  Company Number: B0619972A

PATIENT
  Sex: Female
  Weight: 27 kg

DRUGS (2)
  1. RELENZA [Suspect]
     Indication: INFLUENZA
     Dosage: 10MG TWICE PER DAY
     Route: 055
     Dates: start: 20091113
  2. TAMIFLU [Suspect]
     Indication: INFLUENZA
     Route: 048
     Dates: start: 20091113, end: 20091113

REACTIONS (6)
  - ABNORMAL BEHAVIOUR [None]
  - COUGH [None]
  - HALLUCINATION [None]
  - HALLUCINATION, VISUAL [None]
  - PYREXIA [None]
  - SPEECH DISORDER [None]
